FAERS Safety Report 7932004-6 (Version None)
Quarter: 2011Q4

REPORT INFORMATION
  Report Type: 
  Country: None (occurrence: None)
  Receive Date: 20111121
  Receipt Date: 20111116
  Transmission Date: 20120403
  Serious: Yes (Hospitalization, Other)
  Sender: FDA-Public Use
  Company Number: ES-ABBOTT-11P-144-0873107-00

PATIENT
  Age: 43 Year
  Sex: Female

DRUGS (3)
  1. HUMIRA [Suspect]
     Indication: CROHN'S DISEASE
     Route: 058
     Dates: start: 20110501, end: 20111101
  2. IMURAN [Suspect]
     Indication: CROHN'S DISEASE
     Route: 048
     Dates: start: 20100401, end: 20111101
  3. GLUCOCORTICOIDS [Suspect]
     Indication: CROHN'S DISEASE

REACTIONS (3)
  - HAEMOLYTIC ANAEMIA [None]
  - COOMBS DIRECT TEST POSITIVE [None]
  - PRURITUS [None]
